FAERS Safety Report 12407059 (Version 11)
Quarter: 2018Q2

REPORT INFORMATION
  Report Type: Report from Study
  Country: JP (occurrence: JP)
  Receive Date: 20160526
  Receipt Date: 20180622
  Transmission Date: 20180711
  Serious: Yes (Hospitalization, Other)
  Sender: FDA-Public Use
  Company Number: PHJP2016JP013154

PATIENT
  Age: 11 Year
  Sex: Male
  Weight: 33 kg

DRUGS (46)
  1. ILARIS [Suspect]
     Active Substance: CANAKINUMAB
     Indication: MUCKLE-WELLS SYNDROME
     Dosage: 64 MG, QD
     Route: 058
     Dates: start: 20140225
  2. ILARIS [Suspect]
     Active Substance: CANAKINUMAB
     Dosage: 300 MG, UNK
     Route: 058
     Dates: start: 20150907
  3. ILARIS [Suspect]
     Active Substance: CANAKINUMAB
     Dosage: 300 MG, UNK
     Route: 058
     Dates: start: 20160129
  4. FERRO-GRADUMET [Concomitant]
     Active Substance: FERROUS SULFATE
     Indication: PRODUCT USED FOR UNKNOWN INDICATION
     Dosage: 105 MG, UNK
     Route: 065
     Dates: start: 20150821, end: 20160224
  5. ILARIS [Suspect]
     Active Substance: CANAKINUMAB
     Dosage: 300 MG, UNK
     Route: 058
     Dates: start: 20151005
  6. ILARIS [Suspect]
     Active Substance: CANAKINUMAB
     Dosage: 300 MG, UNK
     Route: 058
     Dates: start: 20151228
  7. ILARIS [Suspect]
     Active Substance: CANAKINUMAB
     Dosage: 300 MG, 4W
     Route: 058
  8. ILARIS [Suspect]
     Active Substance: CANAKINUMAB
     Dosage: 300 MG, UNK
     Route: 058
     Dates: start: 20150810
  9. ILARIS [Suspect]
     Active Substance: CANAKINUMAB
     Dosage: 300 MG, UNK
     Route: 058
     Dates: start: 20151130
  10. NAIXAN [Suspect]
     Active Substance: NAPROXEN SODIUM
     Indication: MUCKLE-WELLS SYNDROME
     Dosage: 400 MG, UNK
     Route: 048
     Dates: start: 20150511, end: 20160511
  11. BRUFEN [Suspect]
     Active Substance: IBUPROFEN
     Indication: MUCKLE-WELLS SYNDROME
     Dosage: 300 MG, UNK
     Route: 048
     Dates: start: 20131018
  12. NEXIUM [Concomitant]
     Active Substance: ESOMEPRAZOLE MAGNESIUM
     Indication: PROPHYLAXIS
     Dosage: 10 MG, UNK
     Route: 048
     Dates: start: 20150128, end: 20150211
  13. KLARICID [Concomitant]
     Active Substance: CLARITHROMYCIN
     Indication: PRODUCT USED FOR UNKNOWN INDICATION
     Dosage: 300 MG, UNK
     Route: 065
     Dates: start: 20151102, end: 20151129
  14. PREDONINE [Concomitant]
     Active Substance: PREDNISOLONE
     Dosage: 10 MG, UNK
     Route: 048
     Dates: start: 20150822, end: 20150828
  15. ILARIS [Suspect]
     Active Substance: CANAKINUMAB
     Dosage: 300 MG, UNK
     Route: 058
     Dates: start: 20150312
  16. ILARIS [Suspect]
     Active Substance: CANAKINUMAB
     Dosage: 300 MG, UNK
     Route: 058
     Dates: start: 20150511
  17. ILARIS [Suspect]
     Active Substance: CANAKINUMAB
     Dosage: 300 MG, UNK
     Route: 058
     Dates: start: 20150713
  18. ILARIS [Suspect]
     Active Substance: CANAKINUMAB
     Dosage: 375 MG, UNK
     Route: 058
     Dates: start: 20160222, end: 20161204
  19. ILARIS [Suspect]
     Active Substance: CANAKINUMAB
     Dosage: 300 MG, UNK
     Route: 058
     Dates: start: 20161205
  20. ALFACALCIDOL [Concomitant]
     Active Substance: ALFACALCIDOL
     Indication: PRODUCT USED FOR UNKNOWN INDICATION
     Dosage: 0.25 UG, UNK
     Route: 065
     Dates: start: 20150721, end: 20160224
  21. BRUFEN [Suspect]
     Active Substance: IBUPROFEN
     Indication: CRYOPYRIN ASSOCIATED PERIODIC SYNDROME
     Dosage: 900 MG, UNK
     Route: 048
     Dates: start: 20150128, end: 20150510
  22. GASTER [Concomitant]
     Active Substance: FAMOTIDINE
     Indication: PRODUCT USED FOR UNKNOWN INDICATION
     Dosage: 10 MG, UNK
     Route: 048
     Dates: start: 20150212, end: 20151227
  23. MUCOSOLVAN [Concomitant]
     Active Substance: AMBROXOL HYDROCHLORIDE
     Indication: BRONCHITIS
     Dosage: 45 MG, UNK
     Route: 048
     Dates: start: 20150128, end: 20150212
  24. HUSCODE [Concomitant]
     Active Substance: CHLORPHENIRAMINE MALEAT\DIHYDROCODEINE PHOSPHATE\METHYLEPHEDRINE HYDROCHLORIDE, DL-
     Indication: BRONCHITIS
     Dosage: 6 DF, UNK
     Route: 048
     Dates: start: 20150128, end: 20150212
  25. PREDONINE [Concomitant]
     Active Substance: PREDNISOLONE
     Dosage: 7.5 MG, UNK
     Route: 048
     Dates: start: 20150829, end: 20150914
  26. PREDONINE [Concomitant]
     Active Substance: PREDNISOLONE
     Dosage: 2 MG, UNK
     Route: 048
     Dates: start: 20160209, end: 20160224
  27. ILARIS [Suspect]
     Active Substance: CANAKINUMAB
     Dosage: 128 MG, UNK
     Route: 058
     Dates: start: 20140602
  28. ILARIS [Suspect]
     Active Substance: CANAKINUMAB
     Dosage: 300 MG, UNK
     Route: 058
     Dates: start: 20150615
  29. KLARICID [Concomitant]
     Active Substance: CLARITHROMYCIN
     Dosage: 200 MG, UNK
     Route: 065
     Dates: start: 20151130, end: 20160221
  30. MUCODYNE [Concomitant]
     Active Substance: CARBOCYSTEINE
     Dosage: 500 MG, UNK
     Route: 048
     Dates: start: 20150413
  31. ILARIS [Suspect]
     Active Substance: CANAKINUMAB
     Dosage: 300 MG, UNK
     Route: 058
     Dates: start: 20150212
  32. NEXIUM [Concomitant]
     Active Substance: ESOMEPRAZOLE MAGNESIUM
     Dosage: 10 MG, UNK
     Route: 048
     Dates: start: 20151228, end: 20160815
  33. ALLELOCK [Concomitant]
     Active Substance: OLOPATADINE HYDROCHLORIDE
     Indication: RHINITIS ALLERGIC
     Dosage: 10 MG, UNK
     Route: 048
     Dates: start: 20150128
  34. MEIACT [Concomitant]
     Active Substance: CEFDITOREN PIVOXIL
     Indication: PRODUCT USED FOR UNKNOWN INDICATION
     Dosage: 300 MG, UNK
     Route: 065
     Dates: start: 20150721, end: 20150728
  35. SINGULAIR [Concomitant]
     Active Substance: MONTELUKAST SODIUM
     Indication: RHINITIS ALLERGIC
     Dosage: 5 MG, UNK
     Route: 048
     Dates: start: 20150128
  36. PREDONINE [Concomitant]
     Active Substance: PREDNISOLONE
     Indication: MUCKLE-WELLS SYNDROME
     Dosage: 20 MG, UNK
     Route: 048
     Dates: start: 20150721, end: 20150803
  37. PREDONINE [Concomitant]
     Active Substance: PREDNISOLONE
     Dosage: 2.5 MG, UNK
     Route: 048
     Dates: start: 20151005, end: 20151227
  38. PREDONINE [Concomitant]
     Active Substance: PREDNISOLONE
     Dosage: 3 MG, UNK
     Route: 048
     Dates: start: 20160201, end: 20160208
  39. ILARIS [Suspect]
     Active Substance: CANAKINUMAB
     Dosage: 128 MG, UNK
     Route: 058
     Dates: start: 20140408
  40. ILARIS [Suspect]
     Active Substance: CANAKINUMAB
     Dosage: 128 MG, UNK
     Route: 058
     Dates: start: 20140724
  41. ILARIS [Suspect]
     Active Substance: CANAKINUMAB
     Dosage: 300 MG, UNK
     Route: 058
     Dates: start: 20150413
  42. ILARIS [Suspect]
     Active Substance: CANAKINUMAB
     Dosage: 300 MG, UNK
     Route: 058
     Dates: start: 20151102
  43. MUCODYNE [Concomitant]
     Active Substance: CARBOCYSTEINE
     Indication: RHINITIS ALLERGIC
     Dosage: 750 MG, UNK
     Route: 048
     Dates: start: 20150128, end: 20150412
  44. PREDONINE [Concomitant]
     Active Substance: PREDNISOLONE
     Dosage: 15 MG, UNK
     Route: 048
     Dates: start: 20150804, end: 20150821
  45. PREDONINE [Concomitant]
     Active Substance: PREDNISOLONE
     Dosage: 5 MG, UNK
     Route: 048
     Dates: start: 20150915, end: 20151004
  46. PREDONINE [Concomitant]
     Active Substance: PREDNISOLONE
     Dosage: 2 MG, UNK
     Route: 048
     Dates: start: 20151228, end: 20160130

REACTIONS (14)
  - Condition aggravated [Recovered/Resolved]
  - Asthenia [Recovered/Resolved]
  - Inflammation [Recovering/Resolving]
  - Pyrexia [Recovering/Resolving]
  - Pain in extremity [Recovering/Resolving]
  - Nasopharyngitis [Recovering/Resolving]
  - C-reactive protein increased [Unknown]
  - Enterocolitis [Not Recovered/Not Resolved]
  - Muckle-Wells syndrome [Recovered/Resolved]
  - Headache [Recovering/Resolving]
  - Malaise [Recovering/Resolving]
  - Scoliosis [Not Recovered/Not Resolved]
  - Inappropriate schedule of drug administration [Unknown]
  - Oropharyngeal pain [Recovering/Resolving]

NARRATIVE: CASE EVENT DATE: 20150706
